FAERS Safety Report 10615341 (Version 5)
Quarter: 2015Q2

REPORT INFORMATION
  Report Type: Spontaneous
  Country: US (occurrence: US)
  Receive Date: 20141201
  Receipt Date: 20150605
  Transmission Date: 20150821
  Serious: Yes (Hospitalization, Other)
  Sender: FDA-Public Use
  Company Number: US-PFIZER INC-2014323296

PATIENT
  Age: 64 Year
  Sex: Male

DRUGS (6)
  1. SUTENT [Suspect]
     Active Substance: SUNITINIB MALATE
     Dosage: 50 MG, DAILY, 2 WEEKS ON AND 1 WEEK OFF
     Dates: start: 20140918
  2. AMLODIPINE BESILATE [Suspect]
     Active Substance: AMLODIPINE BESYLATE
     Indication: HYPERTENSION
     Dosage: 5 MG, 1X/DAY
     Dates: start: 201501
  3. FISH OIL [Concomitant]
     Active Substance: FISH OIL
     Dosage: UNK
  4. LEVOTHYROXINE SODIUM. [Suspect]
     Active Substance: LEVOTHYROXINE SODIUM
     Dosage: 25 MG, 1X/DAY
  5. TAMSULOSIN HCL [Suspect]
     Active Substance: TAMSULOSIN
     Dosage: 0.4 MG, 1X/DAY
  6. METOPROLOL TARTRATE. [Suspect]
     Active Substance: METOPROLOL TARTRATE
     Indication: HYPERTENSION
     Dosage: 50 MG, 2X/DAY
     Dates: start: 201501

REACTIONS (22)
  - Vision blurred [Not Recovered/Not Resolved]
  - Skin fissures [Unknown]
  - Madarosis [Unknown]
  - Dry skin [Not Recovered/Not Resolved]
  - Skin exfoliation [Unknown]
  - Flatulence [Unknown]
  - Palmar-plantar erythrodysaesthesia syndrome [Not Recovered/Not Resolved]
  - Rash macular [Unknown]
  - Hair colour changes [Unknown]
  - Blood pressure increased [Recovered/Resolved]
  - Erythema [Unknown]
  - Oral herpes [Unknown]
  - Swelling face [Unknown]
  - Dysgeusia [Unknown]
  - Gait disturbance [Unknown]
  - Epistaxis [Unknown]
  - Dizziness [Not Recovered/Not Resolved]
  - Skin depigmentation [Unknown]
  - Ageusia [Unknown]
  - Skin papilloma [Unknown]
  - Nasopharyngitis [Unknown]
  - Eye swelling [Unknown]

NARRATIVE: CASE EVENT DATE: 2014
